FAERS Safety Report 6098611-3 (Version None)
Quarter: 2009Q1

REPORT INFORMATION
  Report Type: 
  Country: None (occurrence: None)
  Receive Date: 20090302
  Receipt Date: 20090220
  Transmission Date: 20090719
  Serious: Yes (Hospitalization)
  Sender: FDA-Public Use
  Company Number: US-BIOGENIDEC-2009BI005518

PATIENT
  Age: 39 Year
  Sex: Female
  Weight: 99 kg

DRUGS (1)
  1. AVONEX [Suspect]
     Indication: MULTIPLE SCLEROSIS
     Route: 030
     Dates: start: 20080801

REACTIONS (3)
  - MULTIPLE SCLEROSIS RELAPSE [None]
  - OPTIC NEURITIS [None]
  - VISION BLURRED [None]
